FAERS Safety Report 9981135 (Version 1)
Quarter: 2014Q1

REPORT INFORMATION
  Report Type: Spontaneous
  Country: GB (occurrence: None)
  Receive Date: 20140305
  Receipt Date: 20140305
  Transmission Date: 20141002
  Serious: Yes (Other)
  Sender: FDA-Public Use
  Company Number: AUR-APL-2014-02229

PATIENT
  Age: 67 Year
  Sex: Female
  Weight: 56.69 kg

DRUGS (4)
  1. CITALOPRAM(CITALOPRAM) [Suspect]
     Indication: ANXIETY
     Dosage: 10 MG, 1 IN 1 D
     Route: 048
     Dates: start: 20131206, end: 20131225
  2. AMLODIPINE [Concomitant]
  3. BENDROFLUMETHIAZIDE [Concomitant]
  4. IRBESARTAN [Concomitant]

REACTIONS (2)
  - Cystitis noninfective [None]
  - Dysuria [None]
